FAERS Safety Report 8022874-8 (Version None)
Quarter: 2012Q1

REPORT INFORMATION
  Report Type: 
  Country: None (occurrence: None)
  Receive Date: 20120104
  Receipt Date: 20111222
  Transmission Date: 20120608
  Serious: Yes (Hospitalization)
  Sender: FDA-Public Use
  Company Number: PHHY2011JP101175

PATIENT
  Age: 18 Year
  Sex: Female

DRUGS (4)
  1. IMATINIB MESYLATE [Suspect]
     Dosage: 400 MG, DAILY
     Route: 048
  2. IMATINIB MESYLATE [Suspect]
     Indication: GASTROINTESTINAL STROMAL TUMOUR
     Dosage: 400 MG, DAILY
     Route: 048
     Dates: start: 20101101
  3. IMATINIB MESYLATE [Suspect]
     Dosage: 400 MG, DAILY
     Route: 048
  4. OPIOIDS [Concomitant]

REACTIONS (2)
  - PERITONEAL HAEMORRHAGE [None]
  - TUMOUR HAEMORRHAGE [None]
